FAERS Safety Report 17845472 (Version 1)
Quarter: 2020Q2

REPORT INFORMATION
  Report Type: Spontaneous
  Country: US (occurrence: US)
  Receive Date: 20200601
  Receipt Date: 20200601
  Transmission Date: 20200714
  Serious: No
  Sender: FDA-Public Use
  Company Number: US-BAYER-2020-099378

PATIENT
  Age: 74 Year
  Sex: Female

DRUGS (3)
  1. MIRALAX [Suspect]
     Active Substance: POLYETHYLENE GLYCOL 3350
     Indication: GASTROINTESTINAL DISORDER
     Dosage: UNK
     Route: 048
  2. VITAMIN B12 [Concomitant]
     Active Substance: CYANOCOBALAMIN
     Dosage: UNK
  3. MIRALAX [Suspect]
     Active Substance: POLYETHYLENE GLYCOL 3350
     Indication: GASTROINTESTINAL DISORDER
     Dosage: 2 DF
     Route: 048
     Dates: start: 20200527, end: 20200528

REACTIONS (7)
  - Pain in extremity [Unknown]
  - Extra dose administered [Unknown]
  - Dyspepsia [Unknown]
  - Abdominal distension [Unknown]
  - Incorrect product administration duration [Unknown]
  - Extra dose administered [Unknown]
  - Headache [Unknown]

NARRATIVE: CASE EVENT DATE: 20200527
